FAERS Safety Report 4854992-7 (Version None)
Quarter: 2005Q4

REPORT INFORMATION
  Report Type: 
  Country: None (occurrence: None)
  Receive Date: 20051214
  Receipt Date: 20051130
  Transmission Date: 20060501
  Serious: Yes (Other)
  Sender: FDA-Public Use
  Company Number: PHHO2005JP16960

PATIENT
  Age: 70 Year
  Sex: Male
  Weight: 83.0083 kg

DRUGS (1)
  1. VISUDYNE [Suspect]
     Indication: MACULAR DEGENERATION
     Dosage: 6 MG/M^2 ONCE IV
     Route: 042
     Dates: start: 20040820, end: 20040820

REACTIONS (4)
  - CHOROIDAL NEOVASCULARISATION [None]
  - FIBROSIS [None]
  - HAEMORRHAGE [None]
  - RETINAL DETACHMENT [None]
